FAERS Safety Report 9940159 (Version 1)
Quarter: 2014Q1

REPORT INFORMATION
  Report Type: Report from Study
  Country: US (occurrence: US)
  Receive Date: 20140303
  Receipt Date: 20140303
  Transmission Date: 20141002
  Serious: No
  Sender: FDA-Public Use
  Company Number: US-ABBVIE-13P-163-1033863-00

PATIENT
  Age: 65 Year
  Sex: Female

DRUGS (4)
  1. HUMIRA [Suspect]
     Indication: RHEUMATOID ARTHRITIS
     Route: 058
     Dates: start: 201210
  2. LOSARTAN [Concomitant]
     Indication: BLOOD PRESSURE
  3. GABAPENTIN [Concomitant]
     Indication: HERPES ZOSTER
  4. LIDOCAINE [Concomitant]
     Indication: HERPES ZOSTER
     Route: 062

REACTIONS (2)
  - Cough [Recovered/Resolved]
  - Increased upper airway secretion [Recovered/Resolved]
